FAERS Safety Report 5728507-5 (Version None)
Quarter: 2008Q2

REPORT INFORMATION
  Report Type: 
  Country: None (occurrence: None)
  Receive Date: 20080502
  Receipt Date: 20080502
  Transmission Date: 20081010
  Serious: Yes (Life-Threatening)
  Sender: FDA-Public Use
  Company Number: None

PATIENT
  Age: 60 Year
  Sex: Female
  Weight: 59.8748 kg

DRUGS (2)
  1. HISTINEX HC SYRUP  120MI  ETHEX [Suspect]
     Indication: CHRONIC OBSTRUCTIVE PULMONARY DISEASE
     Dosage: 1 TSP EVERY 4 HOURS
     Dates: start: 20080401, end: 20080501
  2. HISTINEX HC SYRUP  120MI  ETHEX [Suspect]
     Indication: COUGH
     Dosage: 1 TSP EVERY 4 HOURS
     Dates: start: 20080401, end: 20080501

REACTIONS (1)
  - PALPITATIONS [None]
